FAERS Safety Report 23662079 (Version 2)
Quarter: 2025Q1

REPORT INFORMATION
  Report Type: Spontaneous
  Country: US (occurrence: US)
  Receive Date: 20240322
  Receipt Date: 20250328
  Transmission Date: 20250408
  Serious: No
  Sender: AMNEAL
  Company Number: US-AMNEAL PHARMACEUTICALS-2024-AMRX-00369

PATIENT
  Age: 65 Year
  Sex: Female
  Weight: 69.1 kg

DRUGS (2)
  1. ESTRADIOL TRANSDERMAL SYSTEM [Suspect]
     Active Substance: ESTRADIOL
     Indication: Blood oestrogen decreased
     Route: 062
  2. ESTROGENS [Concomitant]
     Active Substance: ESTROGENS
     Indication: Urinary tract infection
     Dosage: TWICE A WEEK
     Route: 067

REACTIONS (2)
  - Drug effect less than expected [Unknown]
  - Product substitution issue [Unknown]
